FAERS Safety Report 9470479 (Version 1)
Quarter: 2013Q3

REPORT INFORMATION
  Report Type: Spontaneous
  Country: IT (occurrence: None)
  Receive Date: 20130815
  Receipt Date: 20130815
  Transmission Date: 20140515
  Serious: Yes (Death, Other)
  Sender: FDA-Public Use
  Company Number: KAD201308-000974

PATIENT
  Age: 66 Year
  Sex: Female

DRUGS (2)
  1. RIBAVIRIN (RIBAVIRIN) [Suspect]
     Indication: LIVER DISORDER
  2. PEGYLATED INTERFERON ALFA-2A (PEGYLATED INTERFERON ALFA-2A) [Suspect]
     Indication: LIVER DISORDER

REACTIONS (2)
  - Hepatocellular carcinoma [None]
  - Hepatic failure [None]
